FAERS Safety Report 10073018 (Version 1)
Quarter: 2014Q2

REPORT INFORMATION
  Report Type: Spontaneous
  Country: ES (occurrence: ES)
  Receive Date: 20140411
  Receipt Date: 20140411
  Transmission Date: 20141212
  Serious: Yes (Hospitalization, Other)
  Sender: FDA-Public Use
  Company Number: ES-PFIZER INC-2014098984

PATIENT
  Age: 66 Year
  Sex: Female

DRUGS (11)
  1. SALAZOPYRINA [Suspect]
     Dosage: 1000 MG, 3X/DAY
     Route: 048
     Dates: start: 20130405, end: 20130430
  2. SINTROM [Interacting]
     Indication: CARDIAC VALVE DISEASE
     Dosage: UNK
     Route: 048
     Dates: start: 2004, end: 20130430
  3. OMEPRAZOL [Concomitant]
     Indication: PROPHYLAXIS AGAINST GASTROINTESTINAL ULCER
     Dosage: 20 MG, 1X/DAY
     Route: 048
     Dates: start: 2004
  4. ATORVASTATIN [Concomitant]
     Indication: DYSLIPIDAEMIA
     Dosage: 40 MG, 1X/DAY
     Route: 048
     Dates: start: 2004
  5. DIGOXIN [Concomitant]
     Indication: ATRIAL FIBRILLATION
     Dosage: 0.23 MG, 1X/DAY
     Route: 048
     Dates: start: 2004
  6. FUROSEMIDE [Concomitant]
     Indication: CARDIAC FAILURE CONGESTIVE
     Dosage: 80 MG, 1X/DAY
     Route: 048
     Dates: start: 2004
  7. ATENOLOL [Concomitant]
     Indication: CARDIAC FAILURE CONGESTIVE
     Dosage: 25 MG, 1X/DAY
     Route: 048
     Dates: start: 2004
  8. ALDACTONE [Concomitant]
     Indication: CARDIAC FAILURE CONGESTIVE
     Dosage: 25 MG, 1X/DAY
     Route: 048
     Dates: start: 2004
  9. EUTIROX [Concomitant]
     Indication: HYPOTHYROIDISM
     Dosage: 25 UG, 1X/DAY
     Route: 048
     Dates: start: 1998
  10. PARAPRES [Concomitant]
     Indication: HYPERTENSION
     Dosage: 8 MG, 1X/DAY
     Route: 048
     Dates: start: 2004
  11. SANDOSTATIN [Concomitant]
     Indication: ANGIODYSPLASIA
     Dosage: 50 UG, 1X/DAY
     Route: 058
     Dates: start: 20130405, end: 20130430

REACTIONS (4)
  - Drug interaction [Unknown]
  - Renal failure acute [Recovered/Resolved]
  - Anaemia [Recovering/Resolving]
  - Hypocoagulable state [Recovered/Resolved]
